FAERS Safety Report 22287006 (Version 1)
Quarter: 2023Q2

REPORT INFORMATION
  Report Type: Spontaneous
  Country: US (occurrence: US)
  Receive Date: 20230505
  Receipt Date: 20230505
  Transmission Date: 20230721
  Serious: No
  Sender: FDA-Public Use
  Company Number: US-NEUROCRINE BIOSCIENCES INC.-2023NBI03449

PATIENT

DRUGS (3)
  1. INGREZZA [Suspect]
     Active Substance: VALBENAZINE
     Indication: Tardive dyskinesia
     Dosage: 60 MILLIGRAM, DAILY
     Route: 065
     Dates: start: 20230407
  2. INGREZZA [Suspect]
     Active Substance: VALBENAZINE
     Dosage: 40 MILLIGRAM, DAILY
     Route: 065
  3. INVEGA [Concomitant]
     Active Substance: PALIPERIDONE

REACTIONS (3)
  - Trismus [Not Recovered/Not Resolved]
  - Dysarthria [Not Recovered/Not Resolved]
  - Glassy eyes [Not Recovered/Not Resolved]

NARRATIVE: CASE EVENT DATE: 20230401
